FAERS Safety Report 15160814 (Version 1)
Quarter: 2018Q3

REPORT INFORMATION
  Report Type: Spontaneous
  Country: US (occurrence: US)
  Receive Date: 20180718
  Receipt Date: 20180718
  Transmission Date: 20181010
  Serious: No
  Sender: FDA-Public Use
  Company Number: US-CARDINAL HEALTH 418, INC.-2052337

PATIENT
  Age: 45 Year
  Sex: Female

DRUGS (1)
  1. SODIUM IODIDE I 123 [Suspect]
     Active Substance: SODIUM IODIDE I-123
     Indication: THYROID FUNCTION TEST
     Route: 048
     Dates: start: 20180130, end: 20180130

REACTIONS (6)
  - Anxiety [Recovering/Resolving]
  - Chest pain [Recovering/Resolving]
  - Abnormal sensation in eye [Recovering/Resolving]
  - Musculoskeletal stiffness [Recovering/Resolving]
  - Goitre [Recovering/Resolving]
  - Dysphagia [Recovering/Resolving]

NARRATIVE: CASE EVENT DATE: 20180130
